FAERS Safety Report 17402110 (Version 3)
Quarter: 2020Q1

REPORT INFORMATION
  Report Type: Spontaneous
  Country: US (occurrence: US)
  Receive Date: 20200211
  Receipt Date: 20200309
  Transmission Date: 20200409
  Serious: No
  Sender: FDA-Public Use
  Company Number: US-PFIZER INC-2019145780

PATIENT
  Age: 87 Year
  Sex: Female

DRUGS (2)
  1. XALATAN [Suspect]
     Active Substance: LATANOPROST
     Indication: GLAUCOMA
     Dosage: 2 GTT, 1X/DAY (1 DROP EACH EYE EVERY EVENING)
     Route: 047
  2. XALATAN [Suspect]
     Active Substance: LATANOPROST
     Dosage: UNK

REACTIONS (1)
  - Therapeutic product effect decreased [Unknown]
